FAERS Safety Report 19279859 (Version 1)
Quarter: 2021Q2

REPORT INFORMATION
  Report Type: Spontaneous
  Country: US (occurrence: US)
  Receive Date: 20210520
  Receipt Date: 20210520
  Transmission Date: 20210717
  Serious: No
  Sender: FDA-Public Use
  Company Number: US-GALDERMA-US2020025806

PATIENT
  Sex: Female

DRUGS (2)
  1. APPRILON [Suspect]
     Active Substance: DOXYCYCLINE
     Indication: ROSACEA
     Route: 065
  2. ORACEA [Suspect]
     Active Substance: DOXYCYCLINE
     Indication: ROSACEA
     Dosage: 40 MG
     Route: 048

REACTIONS (3)
  - Therapeutic response unexpected [Recovered/Resolved]
  - Intentional product use issue [Recovered/Resolved]
  - Drug ineffective [Unknown]
